FAERS Safety Report 25942505 (Version 2)
Quarter: 2025Q4

REPORT INFORMATION
  Report Type: Spontaneous
  Country: US (occurrence: US)
  Receive Date: 20251021
  Receipt Date: 20251024
  Transmission Date: 20260118
  Serious: Yes (Other)
  Sender: JOHNSON AND JOHNSON
  Company Number: US-JNJFOC-20251013805

PATIENT
  Sex: Female

DRUGS (4)
  1. STELARA [Suspect]
     Active Substance: USTEKINUMAB
     Indication: Crohn^s disease
     Route: 058
     Dates: start: 20251007
  2. STELARA [Suspect]
     Active Substance: USTEKINUMAB
     Indication: Psoriasis
  3. STELARA [Suspect]
     Active Substance: USTEKINUMAB
     Indication: Crohn^s disease
     Route: 040
     Dates: start: 20250814
  4. STELARA [Suspect]
     Active Substance: USTEKINUMAB
     Indication: Psoriasis

REACTIONS (17)
  - Exophthalmos [Unknown]
  - Staphylococcal infection [Unknown]
  - Hypoaesthesia [Unknown]
  - Visual impairment [Not Recovered/Not Resolved]
  - Asthenia [Unknown]
  - Mood swings [Unknown]
  - Respiratory tract infection [Unknown]
  - Feeling drunk [Unknown]
  - Memory impairment [Unknown]
  - Speech disorder [Unknown]
  - Language disorder [Unknown]
  - Headache [Unknown]
  - Hypokinesia [Unknown]
  - Nausea [Unknown]
  - Gait disturbance [Unknown]
  - Photophobia [Unknown]
  - Tremor [Unknown]

NARRATIVE: CASE EVENT DATE: 20250101
